FAERS Safety Report 4973497-6 (Version None)
Quarter: 2006Q2

REPORT INFORMATION
  Report Type: 
  Country: None (occurrence: None)
  Receive Date: 20060407
  Receipt Date: 20060216
  Transmission Date: 20061013
  Serious: Yes (Hospitalization)
  Sender: FDA-Public Use
  Company Number: STA-AE-06-005

PATIENT
  Age: 41 Year
  Sex: Male

DRUGS (3)
  1. LORAZEPAM [Suspect]
     Indication: SEDATION
     Dosage: 11 GM IV OVER 25 DAY
     Route: 042
  2. TRIMETHOPRIM + SULFAMETHOXAZOLE [Concomitant]
  3. PREDNISONE [Concomitant]

REACTIONS (6)
  - ANION GAP INCREASED [None]
  - BLOOD BICARBONATE DECREASED [None]
  - BLOOD CREATININE INCREASED [None]
  - BLOOD LACTATE DEHYDROGENASE ABNORMAL [None]
  - BLOOD OSMOLARITY INCREASED [None]
  - HYPOTENSION [None]
